FAERS Safety Report 21280009 (Version 2)
Quarter: 2022Q3

REPORT INFORMATION
  Report Type: Spontaneous
  Country: US (occurrence: US)
  Receive Date: 20220901
  Receipt Date: 20220916
  Transmission Date: 20221026
  Serious: No
  Sender: FDA-Public Use
  Company Number: US-MYLANLABS-2022M1087770

PATIENT
  Sex: Female

DRUGS (4)
  1. ESTRADIOL [Interacting]
     Active Substance: ESTRADIOL
     Indication: Arthralgia
     Dosage: UNK
     Route: 062
  2. ESTRADIOL [Interacting]
     Active Substance: ESTRADIOL
     Indication: Fatigue
  3. COMBIPATCH [Suspect]
     Active Substance: ESTRADIOL\NORETHINDRONE ACETATE
     Indication: Product used for unknown indication
     Dosage: 0.05/0.25 MILLIGRAM
     Route: 062
  4. PROGESTERONE [Concomitant]
     Active Substance: PROGESTERONE
     Dosage: UNK
     Route: 048

REACTIONS (12)
  - Vaginal haemorrhage [Unknown]
  - Vulvovaginal pain [Unknown]
  - Fatigue [Unknown]
  - Influenza like illness [Recovered/Resolved]
  - Nausea [Recovered/Resolved]
  - Dizziness [Recovered/Resolved]
  - Headache [Recovered/Resolved]
  - Arthralgia [Recovered/Resolved]
  - Muscle spasms [Recovered/Resolved]
  - Drug ineffective [Unknown]
  - Drug interaction [Unknown]
  - Off label use [Unknown]
